APPROVED DRUG PRODUCT: ALLOPURINOL
Active Ingredient: ALLOPURINOL
Strength: 300MG
Dosage Form/Route: TABLET;ORAL
Application: A215091 | Product #002 | TE Code: AB
Applicant: AUROBINDO PHARMA LTD
Approved: Apr 14, 2025 | RLD: No | RS: No | Type: RX